FAERS Safety Report 23514329 (Version 1)
Quarter: 2024Q1

REPORT INFORMATION
  Report Type: Spontaneous
  Country: GB (occurrence: GB)
  Receive Date: 20240212
  Receipt Date: 20240212
  Transmission Date: 20240409
  Serious: Yes (Life-Threatening, Hospitalization)
  Sender: FDA-Public Use
  Company Number: None

PATIENT
  Age: 73 Year
  Sex: Female

DRUGS (2)
  1. ALENDRONATE SODIUM [Suspect]
     Active Substance: ALENDRONATE SODIUM
     Dosage: UNK
  2. CLOPIDOGREL [Suspect]
     Active Substance: CLOPIDOGREL BISULFATE

REACTIONS (1)
  - Gastrointestinal haemorrhage [Unknown]
